FAERS Safety Report 15379128 (Version 1)
Quarter: 2018Q3

REPORT INFORMATION
  Report Type: Spontaneous
  Country: US (occurrence: US)
  Receive Date: 20180906
  Receipt Date: 20180906
  Transmission Date: 20181010
  Serious: No
  Sender: FDA-Public Use
  Company Number: None

PATIENT
  Age: 82 Year
  Sex: Female
  Weight: 81.65 kg

DRUGS (2)
  1. VALSARTAN TABLETS [Suspect]
     Active Substance: VALSARTAN
     Indication: HYPERTENSION
     Dosage: ?          QUANTITY:1 PILL;?
     Route: 048
  2. LOSARTAN (POTASSIUM) [Concomitant]

REACTIONS (12)
  - Abdominal pain upper [None]
  - Internal haemorrhage [None]
  - Asthenia [None]
  - Dizziness [None]
  - Diarrhoea [None]
  - Quality of life decreased [None]
  - Fear of falling [None]
  - Feeling hot [None]
  - Syncope [None]
  - Condition aggravated [None]
  - Lethargy [None]
  - Headache [None]
